FAERS Safety Report 9449878 (Version 1)
Quarter: 2013Q3

REPORT INFORMATION
  Report Type: Spontaneous
  Country: NZ (occurrence: NZ)
  Receive Date: 20130809
  Receipt Date: 20130809
  Transmission Date: 20140515
  Serious: Yes (Hospitalization, Disabling, Other)
  Sender: FDA-Public Use
  Company Number: NZ-ASTRAZENECA-2013SE59025

PATIENT
  Sex: Male

DRUGS (1)
  1. BETALOC CR [Suspect]
     Indication: ATRIAL FIBRILLATION
     Route: 048
     Dates: start: 2003

REACTIONS (1)
  - Cerebrovascular accident [Unknown]
